FAERS Safety Report 15761432 (Version 1)
Quarter: 2018Q4

REPORT INFORMATION
  Report Type: Spontaneous
  Country: US (occurrence: US)
  Receive Date: 20181207
  Receipt Date: 20181207
  Transmission Date: 20190205
  Serious: No
  Sender: FDA-Public Use
  Company Number: None

PATIENT
  Age: 60 Year
  Sex: Male

DRUGS (2)
  1. ROSUVASTATIN TAB [Suspect]
     Active Substance: ROSUVASTATIN
  2. EPCLUSA [Suspect]
     Active Substance: SOFOSBUVIR\VELPATASVIR

REACTIONS (2)
  - Therapy cessation [None]
  - Drug interaction [None]

NARRATIVE: CASE EVENT DATE: 20180911
